FAERS Safety Report 8416656 (Version 3)
Quarter: 2012Q4

REPORT INFORMATION
  Report Type: 
  Country: US (occurrence: US)
  Receive Date: 20120220
  Receipt Date: 20120903
  Transmission Date: 20130627
  Serious: Yes (Hospitalization)
  Sender: FDA-Public Use
  Company Number: US-BAYER-2012-016034

PATIENT
  Age: 34 Year
  Sex: Female
  Weight: 58.05 kg

DRUGS (3)
  1. YASMIN [Suspect]
     Dosage: UNK
     Dates: start: 200307, end: 201003
  2. OCELLA [Suspect]
     Dosage: UNK
     Dates: start: 200307, end: 201003
  3. TRIAMTERENE AND HYDROCHLOROTHIAZIDE [Concomitant]
     Dosage: 37.5

REACTIONS (5)
  - Gallbladder disorder [None]
  - Pain [None]
  - Mental disorder [None]
  - Injury [None]
  - Cholecystitis [None]
